FAERS Safety Report 8859134 (Version 1)
Quarter: 2012Q4

REPORT INFORMATION
  Report Type: Spontaneous
  Country: US (occurrence: None)
  Receive Date: 20121024
  Receipt Date: 20121024
  Transmission Date: 20130627
  Serious: Yes (Hospitalization)
  Sender: FDA-Public Use
  Company Number: None

PATIENT
  Age: 55 Year
  Sex: Female
  Weight: 71.67 kg

DRUGS (3)
  1. DICLOFENAC [Suspect]
     Indication: FRACTURE PAIN
     Dosage: one tablet every morning po
     Route: 048
     Dates: start: 20120913, end: 20120915
  2. DICLOFENAC [Suspect]
     Indication: FRACTURED RIBS
     Dosage: one tablet every morning po
     Route: 048
     Dates: start: 20120913, end: 20120915
  3. OXYCODONE-APAP [Concomitant]

REACTIONS (2)
  - Abdominal pain [None]
  - Colitis [None]
